FAERS Safety Report 20066051 (Version 2)
Quarter: 2021Q4

REPORT INFORMATION
  Report Type: Report from Study
  Country: US (occurrence: US)
  Receive Date: 20211114
  Receipt Date: 20211116
  Transmission Date: 20220303
  Serious: Yes (Other)
  Sender: FDA-Public Use
  Company Number: US-BRISTOL-MYERS SQUIBB COMPANY-BMS-2021-120991

PATIENT
  Sex: Female
  Weight: 45.3 kg

DRUGS (1)
  1. APIXABAN [Suspect]
     Active Substance: APIXABAN
     Indication: Cerebrovascular accident prophylaxis
     Dosage: UNK
     Route: 065
     Dates: start: 2013

REACTIONS (5)
  - Gastric cancer [Unknown]
  - Weight decreased [Unknown]
  - Anaemia [Unknown]
  - Peripheral swelling [Unknown]
  - Blood creatinine increased [Recovered/Resolved]
